FAERS Safety Report 24461636 (Version 1)
Quarter: 2024Q4

REPORT INFORMATION
  Report Type: Spontaneous
  Country: VN (occurrence: VN)
  Receive Date: 20241018
  Receipt Date: 20241018
  Transmission Date: 20250115
  Serious: No
  Sender: ROCHE
  Company Number: VN-ROCHE-3554370

PATIENT
  Age: 59 Year
  Sex: Male

DRUGS (5)
  1. RITUXIMAB [Suspect]
     Active Substance: RITUXIMAB
     Indication: Extranodal marginal zone B-cell lymphoma (MALT type)
     Dosage: FOR 3 CYCLES
     Route: 065
  2. CYCLOPHOSPHAMIDE [Concomitant]
     Active Substance: CYCLOPHOSPHAMIDE
     Dosage: FOR 3 CYCLES
  3. DOXORUBICIN [Concomitant]
     Active Substance: DOXORUBICIN
     Dosage: FOR 3 CYCLES
  4. VINCRISTINE [Concomitant]
     Active Substance: VINCRISTINE
     Dosage: FOR 3 CYCLES
  5. PREDNISONE [Concomitant]
     Active Substance: PREDNISONE
     Dosage: FOR 3 CYCLES

REACTIONS (2)
  - Off label use [Unknown]
  - No adverse event [Unknown]
